FAERS Safety Report 22360432 (Version 2)
Quarter: 2023Q2

REPORT INFORMATION
  Report Type: Spontaneous
  Country: US (occurrence: US)
  Receive Date: 20230524
  Receipt Date: 20230529
  Transmission Date: 20230721
  Serious: No
  Sender: FDA-Public Use
  Company Number: US-ABBVIE-5177490

PATIENT
  Age: 38 Year
  Weight: 81 kg

DRUGS (1)
  1. RINVOQ [Suspect]
     Active Substance: UPADACITINIB
     Indication: Inflammation
     Dosage: FORM STRENGTH: 15 MILLIGRAM
     Route: 048
     Dates: start: 202305, end: 202305

REACTIONS (3)
  - Skin disorder [Unknown]
  - Off label use [Unknown]
  - Folliculitis [Unknown]

NARRATIVE: CASE EVENT DATE: 20230501
